FAERS Safety Report 8593399 (Version 2)
Quarter: 2013Q2

REPORT INFORMATION
  Report Type: Spontaneous
  Country: US (occurrence: US)
  Receive Date: 20120604
  Receipt Date: 20130617
  Transmission Date: 20140414
  Serious: Yes (Disabling)
  Sender: FDA-Public Use
  Company Number: US-ASTRAZENECA-2012SE34842

PATIENT
  Sex: Female

DRUGS (7)
  1. NEXIUM [Suspect]
     Indication: GASTROOESOPHAGEAL REFLUX DISEASE
     Route: 048
  2. TUMS [Concomitant]
  3. ALKA SELTZER [Concomitant]
  4. MILK OF MAGNESIA [Concomitant]
  5. PEPTO BISMOL [Concomitant]
  6. ROLAIDS [Concomitant]
  7. MYLANTA [Concomitant]

REACTIONS (5)
  - Impaired work ability [Unknown]
  - Osteoporosis [Unknown]
  - Fall [Unknown]
  - Lower limb fracture [Unknown]
  - Depression [Unknown]
